FAERS Safety Report 17956617 (Version 1)
Quarter: 2020Q2

REPORT INFORMATION
  Report Type: Spontaneous
  Country: US (occurrence: US)
  Receive Date: 20200629
  Receipt Date: 20200629
  Transmission Date: 20200714
  Serious: No
  Sender: FDA-Public Use
  Company Number: US-MYLANLABS-2020M1057331

PATIENT
  Sex: Female

DRUGS (1)
  1. VERAPAMIL HYDROCHLORIDE EXTENDED-RELEASE CAPSULES, USP [Suspect]
     Active Substance: VERAPAMIL HYDROCHLORIDE
     Indication: PRODUCT USED FOR UNKNOWN INDICATION
     Dosage: UNK
     Dates: start: 202005

REACTIONS (3)
  - Hypertension [Not Recovered/Not Resolved]
  - Product substitution issue [Unknown]
  - Dizziness [Recovered/Resolved]
